FAERS Safety Report 6569916-4 (Version None)
Quarter: 2010Q1

REPORT INFORMATION
  Report Type: 
  Country: None (occurrence: None)
  Receive Date: 20100204
  Receipt Date: 20100201
  Transmission Date: 20100710
  Serious: Yes (Other)
  Sender: FDA-Public Use
  Company Number: PHEH2007US15186

PATIENT
  Sex: Female

DRUGS (40)
  1. ZOMETA [Suspect]
     Indication: NEOPLASM MALIGNANT
     Dosage: 4 MG
     Dates: start: 20051101, end: 20080201
  2. ZOMETA [Suspect]
     Dosage: 4 MG
     Dates: start: 20080101
  3. PERIDEX [Concomitant]
  4. ANTINEOPLASTIC AGENTS [Concomitant]
  5. BOTOX [Concomitant]
     Dosage: UNK
     Dates: start: 20010101
  6. KLONOPIN [Concomitant]
  7. ALEVE [Concomitant]
  8. HERCEPTIN [Concomitant]
  9. TAMOXIFEN CITRATE [Concomitant]
     Dosage: 10 MG / DAILY
  10. NEULASTA [Concomitant]
     Dosage: 6 MG, UNK
     Route: 058
  11. LEXAPRO [Concomitant]
  12. VITAMIN B COMPLEX CAP [Concomitant]
     Dosage: UNK
  13. FISH OIL [Concomitant]
     Dosage: UNK
  14. COQ10 [Concomitant]
     Dosage: UNK
  15. VITAMIN C [Concomitant]
     Dosage: UNK
  16. CLONAZEPAM [Concomitant]
     Dosage: 0.5MG, UP TO TID
  17. HERBAL EXTRACTS NOS [Concomitant]
     Dosage: UNK
  18. ZOLOFT [Concomitant]
     Indication: DEPRESSION
     Dosage: UNK
  19. SKELAXIN [Concomitant]
     Dosage: 2 TABLETS 3 X DAILY
  20. SINEMET [Concomitant]
     Dosage: UNK
  21. PAXIL [Concomitant]
     Indication: DEPRESSION
     Dosage: 10MG
     Dates: start: 20010101
  22. MULTI-VITAMINS [Concomitant]
     Dosage: UNK
  23. CALCIUM [Concomitant]
     Dosage: UNK
  24. CELEXA [Concomitant]
     Dosage: 40 MG
  25. VEETIDS [Concomitant]
     Dosage: 500MG
  26. ZITHROMAX [Concomitant]
     Dosage: 250MG
  27. ALOXI [Concomitant]
     Dosage: .25
     Route: 042
  28. DECADRON                                /CAN/ [Concomitant]
     Dosage: 10 MG
     Route: 042
  29. DOCETAXEL [Concomitant]
     Dosage: UNK
  30. TAXOTERE [Concomitant]
     Dosage: UNK
  31. LEVAQUIN [Concomitant]
     Dosage: UNK
     Dates: start: 20080320
  32. VICODIN [Concomitant]
     Indication: PAIN IN JAW
     Dosage: UNK
     Dates: start: 20080201
  33. VENLAFAXINE [Concomitant]
     Dosage: 75 MG / 3 X DAILY
  34. AVELOX [Concomitant]
     Dosage: 400 MG
     Dates: start: 20071231
  35. CLINDAMYCIN [Concomitant]
     Dosage: 300 MG / EVERY 6 HOURS
  36. TYLOX [Concomitant]
     Indication: PAIN
     Dosage: 5/500 MG / EVERY 6 HOURS
  37. KENALOG [Concomitant]
     Dosage: UNK
  38. VOLTAREN                           /00372303/ [Concomitant]
     Dosage: UNK
  39. ADRIAMYCIN PFS [Concomitant]
     Dosage: UNK
  40. CYTOXAN [Concomitant]
     Dosage: UNK

REACTIONS (58)
  - ANAEMIA [None]
  - ANHEDONIA [None]
  - ANXIETY [None]
  - BONE DISORDER [None]
  - BREAST CANCER METASTATIC [None]
  - BREAST MASS [None]
  - BRONCHITIS [None]
  - CERVICAL DYSPLASIA [None]
  - CERVICITIS HUMAN PAPILLOMA VIRUS [None]
  - CERVICOBRACHIAL SYNDROME [None]
  - CHEST DISCOMFORT [None]
  - CHRONIC SINUSITIS [None]
  - CONSTIPATION [None]
  - COUGH [None]
  - DEBRIDEMENT [None]
  - DEFORMITY [None]
  - DENTAL CARIES [None]
  - DENTAL OPERATION [None]
  - DEPRESSION [None]
  - DYSGEUSIA [None]
  - EMOTIONAL DISTRESS [None]
  - ENDODONTIC PROCEDURE [None]
  - ERYTHEMA [None]
  - HAEMANGIOMA [None]
  - HAEMORRHOIDS [None]
  - HYPOAESTHESIA [None]
  - HYPOAESTHESIA ORAL [None]
  - HYPOPHAGIA [None]
  - MASS [None]
  - METASTASES TO BONE [None]
  - METASTASES TO LIVER [None]
  - METASTASES TO LUNG [None]
  - MUSCULOSKELETAL CHEST PAIN [None]
  - MYOFASCIAL PAIN SYNDROME [None]
  - NEUROPATHY PERIPHERAL [None]
  - OSTEOMYELITIS [None]
  - OSTEONECROSIS [None]
  - OSTEORADIONECROSIS [None]
  - PAIN [None]
  - PARAESTHESIA [None]
  - PERIODONTAL DISEASE [None]
  - RASH [None]
  - RENAL CYST [None]
  - SENSORY DISTURBANCE [None]
  - SEQUESTRECTOMY [None]
  - SINUS CONGESTION [None]
  - SKIN DISORDER [None]
  - SPINAL OSTEOARTHRITIS [None]
  - SUICIDAL IDEATION [None]
  - SWELLING [None]
  - SWELLING FACE [None]
  - TOOTH ABSCESS [None]
  - TOOTH DISORDER [None]
  - TOOTH EXTRACTION [None]
  - TOOTH REPAIR [None]
  - TOOTHACHE [None]
  - TORTICOLLIS [None]
  - TUMOUR INVASION [None]
